FAERS Safety Report 6497031-7 (Version None)
Quarter: 2009Q4

REPORT INFORMATION
  Report Type: 
  Country: None (occurrence: None)
  Receive Date: 20091215
  Receipt Date: 20090120
  Transmission Date: 20100525
  Serious: No
  Sender: FDA-Public Use
  Company Number: A0764325A

PATIENT
  Age: 79 Year
  Sex: Male

DRUGS (4)
  1. AVODART [Suspect]
     Indication: BENIGN PROSTATIC HYPERPLASIA
     Dosage: .5MG UNKNOWN
     Route: 048
     Dates: start: 20080101
  2. FLOMAX [Concomitant]
  3. VERAPAMIL [Concomitant]
  4. COZAAR [Concomitant]

REACTIONS (1)
  - DRUG INEFFECTIVE [None]
